FAERS Safety Report 12553537 (Version 1)
Quarter: 2016Q3

REPORT INFORMATION
  Report Type: Report from Study
  Country: MX (occurrence: MX)
  Receive Date: 20160713
  Receipt Date: 20160713
  Transmission Date: 20161109
  Serious: Yes (Other)
  Sender: FDA-Public Use
  Company Number: MX-BAYER-2016-127373

PATIENT
  Age: 35 Year
  Sex: Female
  Weight: 62 kg

DRUGS (4)
  1. PARACETAMOL [Concomitant]
     Active Substance: ACETAMINOPHEN
  2. BETAFERON [Suspect]
     Active Substance: INTERFERON BETA-1B
     Indication: MULTIPLE SCLEROSIS
     Dosage: 1 DF, QOD
     Route: 058
     Dates: start: 20090628, end: 20160418
  3. ALENDRONATE SODIUM. [Concomitant]
     Active Substance: ALENDRONATE SODIUM
     Dosage: UNK
  4. LORATADINE. [Concomitant]
     Active Substance: LORATADINE

REACTIONS (6)
  - Labour complication [Unknown]
  - Influenza [Not Recovered/Not Resolved]
  - Maternal exposure during pregnancy [Recovered/Resolved]
  - Headache [Not Recovered/Not Resolved]
  - Pyrexia [Not Recovered/Not Resolved]
  - Malaise [Not Recovered/Not Resolved]

NARRATIVE: CASE EVENT DATE: 201604
